FAERS Safety Report 20173673 (Version 1)
Quarter: 2021Q4

REPORT INFORMATION
  Report Type: Spontaneous
  Country: US (occurrence: US)
  Receive Date: 20211212
  Receipt Date: 20211212
  Transmission Date: 20220304
  Serious: Yes (Other)
  Sender: FDA-Public Use
  Company Number: US-GILEAD-2021-0559611

PATIENT

DRUGS (1)
  1. VIREAD [Suspect]
     Active Substance: TENOFOVIR DISOPROXIL FUMARATE
     Indication: Product used for unknown indication
     Dosage: UNK
     Route: 048
     Dates: start: 2007, end: 201311

REACTIONS (7)
  - Chronic kidney disease [Unknown]
  - Osteonecrosis [Unknown]
  - Osteoporosis [Unknown]
  - Bone sequestrum [Unknown]
  - Bone loss [Unknown]
  - Bone density decreased [Unknown]
  - Arthralgia [Unknown]
